FAERS Safety Report 4635320-9 (Version None)
Quarter: 2005Q2

REPORT INFORMATION
  Report Type: 
  Country: None (occurrence: None)
  Receive Date: 20050411
  Receipt Date: 20050328
  Transmission Date: 20051028
  Serious: No
  Sender: FDA-Public Use
  Company Number: HQWYE610925FEB05

PATIENT
  Age: 49 Year
  Sex: Female
  Weight: 69.01 kg

DRUGS (4)
  1. PREMARIN [Suspect]
     Indication: ATROPHY
     Dosage: 1/4 APPLICATOR TWICE WEEKLY, VAGINAL
     Route: 067
     Dates: start: 20050103
  2. UNSPECIFIED ESTROGEN REPLACEMENT THERAPY [Suspect]
     Indication: HORMONE REPLACEMENT THERAPY
     Dosage: UNSPECIFIED DAILY VIA PATCH, VAGINAL
     Route: 067
     Dates: start: 19990101
  3. ACCUPRIL [Concomitant]
  4. QVAR (BECLOMETASONE DIPROPIONATE) [Concomitant]

REACTIONS (3)
  - CONFUSIONAL STATE [None]
  - DIZZINESS [None]
  - VENTRICULAR EXTRASYSTOLES [None]
